FAERS Safety Report 5457963-5 (Version None)
Quarter: 2007Q3

REPORT INFORMATION
  Report Type: 
  Country: None (occurrence: None)
  Receive Date: 20070917
  Receipt Date: 20070907
  Transmission Date: 20080115
  Serious: Yes (Other)
  Sender: FDA-Public Use
  Company Number: 2007SP016929

PATIENT
  Sex: Female

DRUGS (2)
  1. ASMANEX TWISTHALER [Suspect]
     Indication: CHRONIC OBSTRUCTIVE PULMONARY DISEASE
     Dosage: 1 DF; BID; PO
     Route: 048
  2. SINGULAIR [Concomitant]

REACTIONS (5)
  - CANDIDIASIS [None]
  - OESOPHAGEAL CANDIDIASIS [None]
  - PHARYNGOLARYNGEAL PAIN [None]
  - VISUAL ACUITY REDUCED [None]
  - WEIGHT INCREASED [None]
